FAERS Safety Report 17032504 (Version 1)
Quarter: 2019Q4

REPORT INFORMATION
  Report Type: Report from Study
  Country: BR (occurrence: BR)
  Receive Date: 20191114
  Receipt Date: 20191114
  Transmission Date: 20200122
  Serious: Yes (Other)
  Sender: FDA-Public Use
  Company Number: PHHY2019BR192731

PATIENT
  Sex: Female

DRUGS (1)
  1. COSENTYX [Suspect]
     Active Substance: SECUKINUMAB
     Indication: PRODUCT USED FOR UNKNOWN INDICATION
     Dosage: UNK
     Route: 065
     Dates: start: 201903

REACTIONS (11)
  - Eye swelling [Unknown]
  - Ocular hyperaemia [Unknown]
  - Scab [Unknown]
  - Decreased immune responsiveness [Not Recovered/Not Resolved]
  - Nasal inflammation [Not Recovered/Not Resolved]
  - Eye inflammation [Not Recovered/Not Resolved]
  - Eye inflammation [Recovered/Resolved]
  - Eye disorder [Unknown]
  - Eye disorder [Recovered/Resolved]
  - Skin exfoliation [Unknown]
  - Pulpitis dental [Not Recovered/Not Resolved]
